FAERS Safety Report 5511109-3 (Version None)
Quarter: 2007Q4

REPORT INFORMATION
  Report Type: 
  Country: None (occurrence: None)
  Receive Date: 20071109
  Receipt Date: 20071025
  Transmission Date: 20080405
  Serious: Yes (Hospitalization, Other)
  Sender: FDA-Public Use
  Company Number: ES-AVENTIS-200715063EU

PATIENT
  Age: 75 Year
  Sex: Female

DRUGS (2)
  1. CLEXANE [Suspect]
     Indication: SURGERY
     Route: 058
     Dates: start: 20071011, end: 20071015
  2. SINTROM [Concomitant]

REACTIONS (5)
  - INTRA-ABDOMINAL HAEMATOMA [None]
  - PAIN [None]
  - PAIN IN EXTREMITY [None]
  - RENAL FAILURE ACUTE [None]
  - URINARY INCONTINENCE [None]
